FAERS Safety Report 8317777-5 (Version None)
Quarter: 2012Q2

REPORT INFORMATION
  Report Type: 
  Country: None (occurrence: None)
  Receive Date: 20120427
  Receipt Date: 20120423
  Transmission Date: 20120825
  Serious: Yes (Death)
  Sender: FDA-Public Use
  Company Number: CA-PFIZER INC-2012082912

PATIENT

DRUGS (1)
  1. AXITINIB [Suspect]

REACTIONS (1)
  - DEATH [None]
